FAERS Safety Report 10200935 (Version 1)
Quarter: 2014Q2

REPORT INFORMATION
  Report Type: Spontaneous
  Country: US (occurrence: US)
  Receive Date: 20140528
  Receipt Date: 20140528
  Transmission Date: 20141212
  Serious: Yes (Other)
  Sender: FDA-Public Use
  Company Number: US-JNJFOC-20140510368

PATIENT
  Age: 37 Year
  Sex: Female
  Weight: 117.03 kg

DRUGS (12)
  1. ELMIRON [Suspect]
     Indication: CYSTITIS INTERSTITIAL
     Route: 048
     Dates: start: 20140506
  2. ELMIRON [Suspect]
     Indication: CYSTITIS INTERSTITIAL
     Route: 048
     Dates: start: 201307, end: 2014
  3. LEXAPRO [Concomitant]
     Indication: DEPRESSION
     Route: 048
  4. COUMADIN [Concomitant]
     Indication: ANTICOAGULANT THERAPY
     Route: 048
  5. METFORMIN [Concomitant]
     Indication: DIABETES MELLITUS
     Dosage: AT BED TIME
     Route: 048
  6. LOESTRIN FE [Concomitant]
     Indication: CONTRACEPTION
     Route: 048
  7. PROBIOTICS [Concomitant]
     Indication: NUTRITIONAL SUPPLEMENTATION
     Route: 048
  8. POTASSIUM CHLORIDE [Concomitant]
     Indication: PRODUCT USED FOR UNKNOWN INDICATION
     Dosage: WEDNESDAY AND SUNDAY
     Route: 048
  9. FUROSEMIDE [Concomitant]
     Indication: PRODUCT USED FOR UNKNOWN INDICATION
     Dosage: WEDNESDAY AND SUNDAY
     Route: 048
  10. PREDNISONE [Concomitant]
     Indication: PRODUCT USED FOR UNKNOWN INDICATION
     Route: 048
  11. BACTRIM DS [Concomitant]
     Indication: PRODUCT USED FOR UNKNOWN INDICATION
     Dosage: 800-160 (UNITS NOT SPECIFIED) EVERY MONDAY, WEDNESDAY, FRIDAY AND SATURDAY
     Route: 065
  12. IMURAN [Concomitant]
     Indication: PRODUCT USED FOR UNKNOWN INDICATION
     Dosage: 800-160 (UNITS NOT SPECIFIED) EVERY MONDAY, WEDNESDAY, FRIDAY AND SATURDAY
     Route: 048

REACTIONS (4)
  - Sarcoidosis [Not Recovered/Not Resolved]
  - Lung disorder [Not Recovered/Not Resolved]
  - Drug prescribing error [Recovered/Resolved]
  - Incorrect dose administered [Not Recovered/Not Resolved]
